FAERS Safety Report 6311028-9 (Version None)
Quarter: 2009Q3

REPORT INFORMATION
  Report Type: 
  Country: None (occurrence: None)
  Receive Date: 20090817
  Receipt Date: 20090804
  Transmission Date: 20100115
  Serious: Yes (Hospitalization)
  Sender: FDA-Public Use
  Company Number: GB-RANBAXY-2009RR-26183

PATIENT
  Age: 19 Year
  Sex: Female

DRUGS (4)
  1. SERTRALINE [Suspect]
     Indication: DEPRESSION
     Dosage: 500 MG, UNK
     Route: 048
     Dates: start: 20090501
  2. SERTRALINE [Suspect]
     Dosage: 500 MG, UNK
     Route: 048
     Dates: start: 20090101
  3. TRAZODONE HYDROCHLORIDE [Suspect]
     Indication: DEPRESSION
     Dosage: 2000 MG, UNK
     Route: 048
     Dates: start: 20090501, end: 20090501
  4. TRAZODONE HYDROCHLORIDE [Suspect]
     Dosage: 2000 MG, UNK
     Route: 048
     Dates: start: 20090101, end: 20090401

REACTIONS (5)
  - FATIGUE [None]
  - HYPOTENSION [None]
  - LETHARGY [None]
  - OVERDOSE [None]
  - SOMNOLENCE [None]
